FAERS Safety Report 4896876-4 (Version None)
Quarter: 2006Q1

REPORT INFORMATION
  Report Type: 
  Country: None (occurrence: None)
  Receive Date: 20060131
  Receipt Date: 20060125
  Transmission Date: 20060701
  Serious: Yes (Life-Threatening)
  Sender: FDA-Public Use
  Company Number: 2006AP00455

PATIENT
  Age: 31 Year
  Sex: Male

DRUGS (2)
  1. XYLOCAINE W/ EPINEPHRINE [Suspect]
     Indication: INFILTRATION ANAESTHESIA
     Dosage: 1% EPINEPHRINE
  2. DEPAS [Concomitant]
     Indication: ANXIETY DISORDER

REACTIONS (5)
  - CYANOSIS [None]
  - LOSS OF CONSCIOUSNESS [None]
  - PULMONARY OEDEMA [None]
  - RESUSCITATION [None]
  - VENTRICULAR FIBRILLATION [None]
